FAERS Safety Report 7545212-3 (Version None)
Quarter: 2011Q2

REPORT INFORMATION
  Report Type: 
  Country: None (occurrence: None)
  Receive Date: 20110614
  Receipt Date: 20110530
  Transmission Date: 20111010
  Serious: Yes (Hospitalization)
  Sender: FDA-Public Use
  Company Number: CA-JNJFOC-20110600787

PATIENT
  Sex: Female
  Weight: 52.9 kg

DRUGS (6)
  1. REMICADE [Suspect]
     Indication: CROHN'S DISEASE
     Route: 042
  2. VITAMIN B-12 [Concomitant]
     Route: 065
  3. ATIVAN [Concomitant]
     Route: 065
  4. WELLBUTRIN [Concomitant]
     Route: 065
  5. LOMOTIL [Concomitant]
     Route: 065
  6. ENTOCORT EC [Concomitant]
     Route: 065

REACTIONS (1)
  - NEPHROLITHIASIS [None]
